FAERS Safety Report 8768942 (Version 1)
Quarter: 2012Q4

REPORT INFORMATION
  Report Type: 
  Country: US (occurrence: US)
  Receive Date: 20120906
  Receipt Date: 20120906
  Transmission Date: 20130627
  Serious: Yes (Other)
  Sender: FDA-Public Use
  Company Number: US-ROCHE-1099129

PATIENT
  Sex: Female

DRUGS (4)
  1. AVASTIN [Suspect]
     Indication: MACULAR OEDEMA
     Route: 031
     Dates: start: 201103
  2. AVASTIN [Suspect]
     Route: 031
     Dates: start: 201105
  3. AVASTIN [Suspect]
     Route: 031
     Dates: start: 201109
  4. LUCENTIS [Suspect]
     Indication: MACULAR OEDEMA
     Route: 031
     Dates: start: 201201

REACTIONS (8)
  - Eye haemorrhage [Unknown]
  - Eye haemorrhage [Unknown]
  - Pain [Unknown]
  - Lacrimation increased [Unknown]
  - Intraocular pressure increased [Unknown]
  - Rhinorrhoea [Unknown]
  - Drug ineffective [Unknown]
  - Product counterfeit [Unknown]
